FAERS Safety Report 5325683-3 (Version None)
Quarter: 2007Q2

REPORT INFORMATION
  Report Type: 
  Country: None (occurrence: None)
  Receive Date: 20070515
  Receipt Date: 20070503
  Transmission Date: 20071010
  Serious: Yes (Other)
  Sender: FDA-Public Use
  Company Number: FR-PFIZER INC-2007036814

PATIENT
  Sex: Female

DRUGS (3)
  1. LYRICA [Suspect]
     Indication: PAIN
  2. VASTAREL [Concomitant]
  3. PARACETAMOL [Concomitant]

REACTIONS (5)
  - DIPLOPIA [None]
  - DRY EYE [None]
  - EXPRESSIVE LANGUAGE DISORDER [None]
  - FEELING DRUNK [None]
  - VISION BLURRED [None]
